FAERS Safety Report 20370352 (Version 1)
Quarter: 2022Q1

REPORT INFORMATION
  Report Type: Spontaneous
  Country: CN (occurrence: CN)
  Receive Date: 20220124
  Receipt Date: 20220124
  Transmission Date: 20220423
  Serious: No
  Sender: FDA-Public Use
  Company Number: CN-FRESENIUS KABI-FK202200671

PATIENT
  Age: 62 Year
  Sex: Male
  Weight: 55 kg

DRUGS (1)
  1. EGG PHOSPHOLIPIDS\GLYCERIN\MEDIUM-CHAIN TRIGLYCERIDES\SOYBEAN OIL [Suspect]
     Active Substance: EGG PHOSPHOLIPIDS\GLYCERIN\MEDIUM-CHAIN TRIGLYCERIDES\SOYBEAN OIL
     Indication: Symptomatic treatment
     Dosage: THE FORM OF ADMIN IS INJECTION IN SOURCES.
     Route: 041
     Dates: start: 20211228, end: 20211230

REACTIONS (2)
  - Chest discomfort [Recovering/Resolving]
  - Convulsions local [Recovering/Resolving]

NARRATIVE: CASE EVENT DATE: 20211230
